FAERS Safety Report 7220978-0 (Version None)
Quarter: 2011Q1

REPORT INFORMATION
  Report Type: 
  Country: None (occurrence: None)
  Receive Date: 20110112
  Receipt Date: 20110107
  Transmission Date: 20110831
  Serious: Yes (Death, Life-Threatening, Hospitalization)
  Sender: FDA-Public Use
  Company Number: PHHO2011NL00733

PATIENT
  Sex: Male
  Weight: 93 kg

DRUGS (2)
  1. MYCOPHENOLIC ACID [Suspect]
     Indication: TRANSPLANT
     Dosage: 2160 MG
     Route: 048
     Dates: start: 20101013
  2. SANDIMMUNE [Suspect]
     Indication: TRANSPLANT
     Dosage: 300 MG
     Route: 042
     Dates: start: 20101008, end: 20101105

REACTIONS (1)
  - VENOOCCLUSIVE DISEASE [None]
